FAERS Safety Report 25337575 (Version 1)
Quarter: 2025Q2

REPORT INFORMATION
  Report Type: Spontaneous
  Country: DE (occurrence: DE)
  Receive Date: 20250520
  Receipt Date: 20250520
  Transmission Date: 20250717
  Serious: Yes (Hospitalization, Other)
  Sender: MYLAN
  Company Number: DE-MENARINI-DE-MEN-113736

PATIENT
  Age: 84 Year
  Sex: Male

DRUGS (20)
  1. AMLODIPINE [Suspect]
     Active Substance: AMLODIPINE BESYLATE
     Indication: Hypertension
     Dosage: 5 MILLIGRAM, QD
  2. AMLODIPINE [Suspect]
     Active Substance: AMLODIPINE BESYLATE
     Dosage: 5 MILLIGRAM, QD
     Route: 065
  3. AMLODIPINE [Suspect]
     Active Substance: AMLODIPINE BESYLATE
     Dosage: 5 MILLIGRAM, QD
     Route: 065
  4. AMLODIPINE [Suspect]
     Active Substance: AMLODIPINE BESYLATE
     Dosage: 5 MILLIGRAM, QD
  5. TORSEMIDE [Suspect]
     Active Substance: TORSEMIDE
     Indication: Hypertension
  6. TORSEMIDE [Suspect]
     Active Substance: TORSEMIDE
     Route: 065
  7. TORSEMIDE [Suspect]
     Active Substance: TORSEMIDE
     Route: 065
  8. TORSEMIDE [Suspect]
     Active Substance: TORSEMIDE
  9. INDAPAMIDE [Suspect]
     Active Substance: INDAPAMIDE
     Indication: Hypertension
     Dosage: 1.25 MILLIGRAM, QD
  10. INDAPAMIDE [Suspect]
     Active Substance: INDAPAMIDE
     Dosage: 1.25 MILLIGRAM, QD
     Route: 065
  11. INDAPAMIDE [Suspect]
     Active Substance: INDAPAMIDE
     Dosage: 1.25 MILLIGRAM, QD
     Route: 065
  12. INDAPAMIDE [Suspect]
     Active Substance: INDAPAMIDE
     Dosage: 1.25 MILLIGRAM, QD
  13. BISOPROLOL [Suspect]
     Active Substance: BISOPROLOL
     Indication: Hypertension
     Dosage: 5 MILLIGRAM, QD
  14. BISOPROLOL [Suspect]
     Active Substance: BISOPROLOL
     Dosage: 5 MILLIGRAM, QD
     Route: 065
  15. BISOPROLOL [Suspect]
     Active Substance: BISOPROLOL
     Dosage: 5 MILLIGRAM, QD
     Route: 065
  16. BISOPROLOL [Suspect]
     Active Substance: BISOPROLOL
     Dosage: 5 MILLIGRAM, QD
  17. PERINDOPRIL [Suspect]
     Active Substance: PERINDOPRIL
     Indication: Hypertension
     Dosage: 5 MILLIGRAM, QD
  18. PERINDOPRIL [Suspect]
     Active Substance: PERINDOPRIL
     Dosage: 5 MILLIGRAM, QD
     Route: 065
  19. PERINDOPRIL [Suspect]
     Active Substance: PERINDOPRIL
     Dosage: 5 MILLIGRAM, QD
     Route: 065
  20. PERINDOPRIL [Suspect]
     Active Substance: PERINDOPRIL
     Dosage: 5 MILLIGRAM, QD

REACTIONS (7)
  - Fall [Recovered/Resolved]
  - Acute kidney injury [Unknown]
  - Dysarthria [Unknown]
  - Electrolyte imbalance [Recovered/Resolved]
  - Syncope [Recovered/Resolved]
  - Diarrhoea [Unknown]
  - Hypotension [Unknown]
